FAERS Safety Report 23700609 (Version 1)
Quarter: 2024Q2

REPORT INFORMATION
  Report Type: Report from Study
  Country: US (occurrence: US)
  Receive Date: 20240403
  Receipt Date: 20240403
  Transmission Date: 20240715
  Serious: Yes (Hospitalization)
  Sender: FDA-Public Use
  Company Number: US-ABBVIE-5546458

PATIENT
  Sex: Female

DRUGS (1)
  1. HUMIRA [Suspect]
     Active Substance: ADALIMUMAB
     Indication: Rheumatoid arthritis
     Route: 058
     Dates: start: 20230929

REACTIONS (7)
  - Respiratory tract congestion [Not Recovered/Not Resolved]
  - Illness [Recovering/Resolving]
  - Pneumonia [Recovering/Resolving]
  - Wheezing [Recovering/Resolving]
  - Vomiting [Unknown]
  - Diarrhoea [Unknown]
  - Dyspnoea [Recovering/Resolving]

NARRATIVE: CASE EVENT DATE: 20230101
